FAERS Safety Report 5362023-8 (Version None)
Quarter: 2007Q2

REPORT INFORMATION
  Report Type: 
  Country: None (occurrence: None)
  Receive Date: 20070615
  Receipt Date: 20070607
  Transmission Date: 20071010
  Serious: Yes (Hospitalization)
  Sender: FDA-Public Use
  Company Number: TPA2007A01184

PATIENT
  Sex: Male

DRUGS (4)
  1. ACTOS [Suspect]
     Indication: DIABETES MELLITUS
     Dosage: 45 MG, 1 IN 1 D, UNKNOWN
     Route: 065
     Dates: start: 20000101
  2. GLUCOTROL [Concomitant]
  3. LASIX [Concomitant]
  4. DILTIAZEM [Concomitant]

REACTIONS (2)
  - CONVULSION [None]
  - TRANSIENT ISCHAEMIC ATTACK [None]
